FAERS Safety Report 11696654 (Version 2)
Quarter: 2016Q1

REPORT INFORMATION
  Report Type: Report from Study
  Country: BR (occurrence: BR)
  Receive Date: 20151104
  Receipt Date: 20160127
  Transmission Date: 20160525
  Serious: Yes (Hospitalization, Other)
  Sender: FDA-Public Use
  Company Number: BR-GLAXOSMITHKLINE-BR2015GSK033029

PATIENT
  Age: 21 Year
  Sex: Female
  Weight: 80 kg

DRUGS (3)
  1. BELIMUMAB [Suspect]
     Active Substance: BELIMUMAB
     Indication: SYSTEMIC LUPUS ERYTHEMATOSUS
     Dosage: UNK
  2. BELIMUMAB [Suspect]
     Active Substance: BELIMUMAB
     Dosage: UNK, U
     Route: 065
     Dates: start: 20141125, end: 201501
  3. BELIMUMAB [Suspect]
     Active Substance: BELIMUMAB
     Dosage: UNK

REACTIONS (9)
  - Pleural effusion [Unknown]
  - Exposure during pregnancy [Unknown]
  - Pregnancy [Recovered/Resolved]
  - Pericardial effusion [Unknown]
  - Live birth [Unknown]
  - Systemic lupus erythematosus [Unknown]
  - Hospitalisation [Recovered/Resolved]
  - Pneumonia [Unknown]
  - Alopecia [Unknown]
